FAERS Safety Report 19854989 (Version 1)
Quarter: 2021Q3

REPORT INFORMATION
  Report Type: Report from Study
  Country: US (occurrence: US)
  Receive Date: 20210920
  Receipt Date: 20210920
  Transmission Date: 20211014
  Serious: Yes (Other)
  Sender: FDA-Public Use
  Company Number: US-SHIRE-US202000312

PATIENT
  Sex: Male

DRUGS (2)
  1. CUVITRU [Suspect]
     Active Substance: HUMAN IMMUNOGLOBULIN G
     Indication: HYPOGAMMAGLOBULINAEMIA
     Dosage: 10 GRAM, Q2WEEKS
     Route: 065
  2. CUVITRU [Suspect]
     Active Substance: HUMAN IMMUNOGLOBULIN G
     Indication: PRIMARY IMMUNODEFICIENCY SYNDROME
     Dosage: 14 GRAM, Q2WEEKS
     Route: 065

REACTIONS (10)
  - Weight increased [Unknown]
  - Mass [Unknown]
  - Incorrect dosage administered [Unknown]
  - Scar [Unknown]
  - Lower respiratory tract infection [Unknown]
  - Staphylococcal infection [Unknown]
  - Infection [Recovered/Resolved]
  - Infusion related reaction [Unknown]
  - Sinusitis [Unknown]
  - Ear infection [Unknown]
